FAERS Safety Report 8058139-8 (Version None)
Quarter: 2012Q1

REPORT INFORMATION
  Report Type: 
  Country: None (occurrence: None)
  Receive Date: 20120113
  Receipt Date: 20120109
  Transmission Date: 20120608
  Serious: Yes (Other)
  Sender: FDA-Public Use
  Company Number: 2010SP028878

PATIENT
  Age: 18 Year
  Sex: Female
  Weight: 60 kg

DRUGS (1)
  1. DESOGESTREL AND ETHINYL ESTRADIOL [Suspect]
     Indication: CONTRACEPTION
     Dosage: QD;PO
     Route: 048
     Dates: start: 20080101

REACTIONS (7)
  - DRUG DOSE OMISSION [None]
  - HEADACHE [None]
  - DYSPNOEA [None]
  - SKIN DISCOLOURATION [None]
  - BACK PAIN [None]
  - VOMITING [None]
  - BRONCHITIS [None]
